FAERS Safety Report 6941815-5 (Version None)
Quarter: 2010Q3

REPORT INFORMATION
  Report Type: 
  Country: None (occurrence: None)
  Receive Date: 20100826
  Receipt Date: 20100818
  Transmission Date: 20110219
  Serious: Yes (Hospitalization)
  Sender: FDA-Public Use
  Company Number: CO-PFIZER INC-2010104770

PATIENT
  Age: 60 Year
  Sex: Female

DRUGS (8)
  1. LIPITOR [Suspect]
     Indication: BLOOD CHOLESTEROL INCREASED
     Dosage: 20 MG, 1X/DAY
     Route: 048
     Dates: start: 20100601
  2. ENALAPRIL [Concomitant]
     Indication: HYPERTENSION
     Dosage: 20 MG, 2X/DAY
     Route: 048
     Dates: end: 20100803
  3. LOSARTAN [Concomitant]
     Indication: BLOOD PRESSURE INCREASED
     Dosage: 50 MG, 1X/DAY
     Route: 048
     Dates: start: 20100803
  4. COLCHICINE [Concomitant]
     Indication: ARTHRITIS
     Dosage: 0.5 MG, 1X/DAY
     Route: 048
  5. GLUCOSAMINE HYDROCHLORIDE/CHONDROITIN SULFATE [Concomitant]
     Indication: ARTHRITIS
     Dosage: UNK, ONCE DAILY
  6. CALCIUM CARBONATE/COLECALCIFEROL [Concomitant]
     Dosage: UNK
  7. GLUCOSAMINE SULFATE [Concomitant]
     Dosage: UNK
  8. MELOXICAM [Concomitant]
     Indication: PAIN
     Dosage: 7.5 MG, AS NEEDED

REACTIONS (4)
  - ABDOMINAL PAIN [None]
  - BLOOD PRESSURE INCREASED [None]
  - HEADACHE [None]
  - MALAISE [None]
